FAERS Safety Report 23275877 (Version 1)
Quarter: 2023Q4

REPORT INFORMATION
  Report Type: Spontaneous
  Country: DE (occurrence: DE)
  Receive Date: 20231208
  Receipt Date: 20231208
  Transmission Date: 20240109
  Serious: Yes (Other)
  Sender: FDA-Public Use
  Company Number: DE-EMBRYOTOX-202205567

PATIENT
  Sex: Female
  Weight: 68 kg

DRUGS (4)
  1. QUETIAPINE [Suspect]
     Active Substance: QUETIAPINE
     Indication: Bipolar disorder
     Dosage: 325 [MG/D ]
     Route: 048
  2. BOOSTRIX [Concomitant]
     Active Substance: TETANUS TOXOID, REDUCED DIPHTHERIA TOXOID AND ACELLULAR PERTUSSIS VACCINE, ADSORBED ANTIGENS
     Indication: Immunisation
     Route: 030
     Dates: start: 20220413, end: 20220413
  3. COMIRNATY (TOZINAMERAN) [Concomitant]
     Active Substance: TOZINAMERAN
     Indication: COVID-19 immunisation
     Dosage: 3RD VACCINATION
     Route: 030
     Dates: start: 20220121, end: 20220121
  4. PROTAPHANE [Concomitant]
     Active Substance: INSULIN HUMAN
     Indication: Gestational diabetes
     Dosage: 42 [I.E./D ]
     Route: 058

REACTIONS (2)
  - Gestational diabetes [Recovered/Resolved]
  - Exposure during pregnancy [Unknown]
